FAERS Safety Report 9856164 (Version 1)
Quarter: 2014Q1

REPORT INFORMATION
  Report Type: Report from Study
  Country: MX (occurrence: MX)
  Receive Date: 20140130
  Receipt Date: 20140130
  Transmission Date: 20141002
  Serious: Yes (Death, Other)
  Sender: FDA-Public Use
  Company Number: PHHY2014MX010281

PATIENT
  Age: 63 Year
  Sex: Female

DRUGS (2)
  1. CO-DIOVAN [Suspect]
     Indication: HYPERTENSION
     Dosage: 1 DF (160/25MG) DAILY
     Route: 048
     Dates: start: 200811
  2. LAMISIL//TERBINAFINE [Concomitant]
     Dosage: UNK UKN, UNK

REACTIONS (3)
  - Renal failure [Fatal]
  - Diabetes mellitus [Unknown]
  - Renal disorder [Unknown]
